FAERS Safety Report 5712703-7 (Version None)
Quarter: 2008Q2

REPORT INFORMATION
  Report Type: 
  Country: None (occurrence: None)
  Receive Date: 20080422
  Receipt Date: 20080421
  Transmission Date: 20081010
  Serious: Yes (Other)
  Sender: FDA-Public Use
  Company Number: US-BAYER-200714457BWH

PATIENT

DRUGS (3)
  1. NEXAVAR [Suspect]
     Indication: DRUG USE FOR UNKNOWN INDICATION
     Route: 048
  2. WARFARIN SODIUM [Concomitant]
  3. LOVENOX [Concomitant]

REACTIONS (1)
  - THROMBOSIS [None]
